FAERS Safety Report 8482965-4 (Version None)
Quarter: 2012Q3

REPORT INFORMATION
  Report Type: 
  Country: None (occurrence: None)
  Receive Date: 20120702
  Receipt Date: 20120626
  Transmission Date: 20120928
  Serious: Yes (Other)
  Sender: FDA-Public Use
  Company Number: US-AMGEN-USASP2011020162

PATIENT
  Age: 57 Year
  Sex: Female
  Weight: 64.399 kg

DRUGS (7)
  1. PERCOCET [Concomitant]
     Dosage: UNK
  2. ENBREL [Suspect]
     Indication: RHEUMATOID ARTHRITIS
     Dosage: 50 MG, QWK
     Route: 058
     Dates: start: 20080225
  3. GABAPENTIN [Concomitant]
     Dosage: UNK
  4. AMBIEN [Concomitant]
     Dosage: UNK
  5. CYMBALTA [Concomitant]
     Dosage: UNK
  6. PREDNISONE TAB [Concomitant]
     Dosage: UNK
  7. ENBREL [Suspect]
     Dosage: 50 MG, QWK
     Dates: start: 20080307

REACTIONS (4)
  - FIBROMYALGIA [None]
  - ABDOMINAL HERNIA [None]
  - DEPRESSION [None]
  - STRESS [None]
